FAERS Safety Report 5611686-8 (Version None)
Quarter: 2008Q1

REPORT INFORMATION
  Report Type: 
  Country: None (occurrence: None)
  Receive Date: 20080201
  Receipt Date: 20080121
  Transmission Date: 20080703
  Serious: Yes (Hospitalization)
  Sender: FDA-Public Use
  Company Number: FR-GENENTECH-241125

PATIENT
  Sex: Female
  Weight: 45 kg

DRUGS (11)
  1. BEVACIZUMAB [Suspect]
     Indication: NON-SMALL CELL LUNG CANCER
     Dosage: 15 MG/KG, Q3W
     Route: 042
     Dates: start: 20070403
  2. BEVACIZUMAB [Suspect]
     Dosage: 15 MG/KG, Q3W
     Route: 042
     Dates: start: 20070426
  3. BEVACIZUMAB [Suspect]
     Dosage: 1450 MG, Q3W
     Route: 042
     Dates: start: 20070727, end: 20070823
  4. CISPLATIN [Suspect]
     Indication: NON-SMALL CELL LUNG CANCER
     Dosage: 120 MG, UNK
     Route: 042
     Dates: start: 20070403, end: 20070426
  5. GEMCITABINE [Suspect]
     Indication: NON-SMALL CELL LUNG CANCER
     Dosage: 1900 MG, UNK
     Route: 042
     Dates: start: 20070403
  6. GEMCITABINE [Suspect]
     Dosage: 1900 MG, UNK
     Route: 042
     Dates: start: 20070426
  7. KETOPROFEN [Concomitant]
     Indication: DRUG USE FOR UNKNOWN INDICATION
  8. ACETAMINOPHEN W/ PROPOXYPHENE HCL [Concomitant]
     Indication: DRUG USE FOR UNKNOWN INDICATION
  9. NEXIUM [Concomitant]
     Indication: DRUG USE FOR UNKNOWN INDICATION
  10. KAYEXALATE [Concomitant]
     Indication: DRUG USE FOR UNKNOWN INDICATION
  11. IMOVANE [Concomitant]
     Indication: DRUG USE FOR UNKNOWN INDICATION

REACTIONS (2)
  - ANAEMIA [None]
  - BLOOD CREATININE INCREASED [None]
